FAERS Safety Report 14802950 (Version 1)
Quarter: 2018Q2

REPORT INFORMATION
  Report Type: Report from Study
  Country: None (occurrence: US)
  Receive Date: 20180424
  Receipt Date: 20180424
  Transmission Date: 20180711
  Serious: Yes (Hospitalization)
  Sender: FDA-Public Use
  Company Number: US-ABBVIE-18K-163-2328420-00

PATIENT
  Age: 51 Year
  Sex: Female

DRUGS (1)
  1. HUMIRA [Suspect]
     Active Substance: ADALIMUMAB
     Indication: ANKYLOSING SPONDYLITIS
     Route: 058
     Dates: start: 2014, end: 201803

REACTIONS (3)
  - Spondylitis [Not Recovered/Not Resolved]
  - Nerve compression [Recovering/Resolving]
  - Vertebral osteophyte [Recovering/Resolving]

NARRATIVE: CASE EVENT DATE: 201801
